FAERS Safety Report 6549412-0 (Version None)
Quarter: 2010Q1

REPORT INFORMATION
  Report Type: 
  Country: None (occurrence: None)
  Receive Date: 20100125
  Receipt Date: 20100121
  Transmission Date: 20100710
  Serious: Yes (Death)
  Sender: FDA-Public Use
  Company Number: PHEH2009US10857

PATIENT
  Sex: Male

DRUGS (5)
  1. SANDOSTATIN [Suspect]
  2. WARFARIN [Concomitant]
  3. HYDROCHLOROZONE [Concomitant]
  4. TEMSIROLIMUS [Concomitant]
  5. SUNITINIB MALATE [Concomitant]

REACTIONS (2)
  - MALIGNANT NEOPLASM PROGRESSION [None]
  - METASTATIC RENAL CELL CARCINOMA [None]
